FAERS Safety Report 6742583-2 (Version None)
Quarter: 2010Q2

REPORT INFORMATION
  Report Type: 
  Country: None (occurrence: None)
  Receive Date: 20100524
  Receipt Date: 20100413
  Transmission Date: 20101027
  Serious: No
  Sender: FDA-Public Use
  Company Number: ACO_00700_2010

PATIENT
  Sex: Female
  Weight: 52.1637 kg

DRUGS (4)
  1. AMPYRA [Suspect]
     Indication: MULTIPLE SCLEROSIS
     Dosage: (10 MG QD ORAL)
     Route: 048
     Dates: start: 20100401
  2. COPAXONE /03175301/ [Concomitant]
  3. BACLOFEN [Concomitant]
  4. AMBIEN [Concomitant]

REACTIONS (1)
  - DIZZINESS [None]
